FAERS Safety Report 11482748 (Version 1)
Quarter: 2015Q3

REPORT INFORMATION
  Report Type: Spontaneous
  Country: KR (occurrence: None)
  Receive Date: 20150908
  Receipt Date: 20150908
  Transmission Date: 20151125
  Serious: Yes (Death, Life-Threatening)
  Sender: FDA-Public Use
  Company Number: NSR_02241_2015

PATIENT
  Age: 76 Year
  Sex: Male

DRUGS (1)
  1. ALLOPURINOL (ALLOPURINOL) [Suspect]
     Active Substance: ALLOPURINOL
     Indication: PROPHYLAXIS
     Dosage: 300 MG (11.0 MG/ML/MIN); DAILY, STARTING AND MAINTENANCE

REACTIONS (5)
  - Azotaemia [None]
  - Subdural haemorrhage [None]
  - Drug reaction with eosinophilia and systemic symptoms [None]
  - Haemodialysis [None]
  - Acute kidney injury [None]
